FAERS Safety Report 17293430 (Version 1)
Quarter: 2020Q1

REPORT INFORMATION
  Report Type: Spontaneous
  Country: US (occurrence: US)
  Receive Date: 20200120
  Receipt Date: 20200120
  Transmission Date: 20200409
  Serious: Yes (Other)
  Sender: FDA-Public Use
  Company Number: None

PATIENT
  Age: 57 Year
  Sex: Female
  Weight: 67.5 kg

DRUGS (6)
  1. BIOTIN [Concomitant]
     Active Substance: BIOTIN
  2. NORDIC NATURALS ULTIMATE OMEGA [Concomitant]
  3. METHYL COBALAMIN [Concomitant]
  4. HUMIRA [Suspect]
     Active Substance: ADALIMUMAB
     Indication: PSORIATIC ARTHROPATHY
     Dosage: ?          OTHER FREQUENCY:EVERY 14 DAYS;?
     Route: 058
     Dates: start: 20191108, end: 20191207
  5. ARMOUR THYROID [Concomitant]
     Active Substance: THYROID, PORCINE
  6. LEUTEIN + ZEAXANTHIN [Concomitant]

REACTIONS (2)
  - Burning sensation [None]
  - Rash [None]

NARRATIVE: CASE EVENT DATE: 20191207
